FAERS Safety Report 7403167-6 (Version None)
Quarter: 2011Q2

REPORT INFORMATION
  Report Type: 
  Country: None (occurrence: None)
  Receive Date: 20110408
  Receipt Date: 20110329
  Transmission Date: 20111010
  Serious: Yes (Other)
  Sender: FDA-Public Use
  Company Number: US-PFIZER INC-2011070621

PATIENT
  Sex: Female
  Weight: 45.8 kg

DRUGS (6)
  1. PRISTIQ [Suspect]
     Indication: ANXIETY
     Dosage: 50 MG, 1X/DAY
     Route: 048
     Dates: start: 20110325, end: 20110329
  2. METOPROLOL [Concomitant]
     Indication: HEART RATE ABNORMAL
     Dosage: 25 MG, 1X/DAY
     Route: 048
  3. TRAVATAN [Concomitant]
     Indication: GLAUCOMA
     Dosage: 1 GTT, 1X/DAY
     Route: 047
  4. PRISTIQ [Suspect]
     Indication: PANIC ATTACK
  5. LORAZEPAM [Concomitant]
     Indication: ANXIETY
     Dosage: 0.5 MG, 1X/DAY
     Route: 048
  6. PRISTIQ [Suspect]
     Indication: DEPRESSION

REACTIONS (7)
  - TINNITUS [None]
  - SOMNOLENCE [None]
  - EXPIRED DRUG ADMINISTERED [None]
  - WRONG TECHNIQUE IN DRUG USAGE PROCESS [None]
  - NAUSEA [None]
  - DIZZINESS [None]
  - VISUAL IMPAIRMENT [None]
